FAERS Safety Report 24583603 (Version 1)
Quarter: 2024Q4

REPORT INFORMATION
  Report Type: Spontaneous
  Country: JP (occurrence: JP)
  Receive Date: 20241106
  Receipt Date: 20241106
  Transmission Date: 20250115
  Serious: Yes (Other)
  Sender: STRIDES
  Company Number: JP-STRIDES ARCOLAB LIMITED-2024SP014208

PATIENT
  Age: 21 Year
  Sex: Female

DRUGS (6)
  1. LIDOCAINE [Suspect]
     Active Substance: LIDOCAINE
     Indication: Wisdom teeth removal
     Dosage: 100 MILLIGRAM
     Route: 065
  2. FENTANYL [Suspect]
     Active Substance: FENTANYL
     Indication: Wisdom teeth removal
     Dosage: 100 MICROGRAM
     Route: 065
  3. MIDAZOLAM [Suspect]
     Active Substance: MIDAZOLAM
     Indication: Wisdom teeth removal
     Dosage: 2 MILLIGRAM
     Route: 065
  4. PROPOFOL [Suspect]
     Active Substance: PROPOFOL
     Indication: Wisdom teeth removal
     Dosage: 150 MILLIGRAM
     Route: 065
  5. ROCURONIUM BROMIDE [Suspect]
     Active Substance: ROCURONIUM BROMIDE
     Indication: Wisdom teeth removal
     Dosage: 50 MILLIGRAM
     Route: 065
  6. SEVOFLURANE [Suspect]
     Active Substance: SEVOFLURANE
     Indication: Wisdom teeth removal
     Dosage: UNK
     Route: 065

REACTIONS (2)
  - Language disorder [Recovered/Resolved]
  - Off label use [Unknown]
